FAERS Safety Report 18647841 (Version 2)
Quarter: 2020Q4

REPORT INFORMATION
  Report Type: Spontaneous
  Country: CO (occurrence: CO)
  Receive Date: 20201222
  Receipt Date: 20201228
  Transmission Date: 20210114
  Serious: Yes (Other)
  Sender: FDA-Public Use
  Company Number: CO-GLAXOSMITHKLINE-CO2020AMR105651

PATIENT
  Age: 27 Year
  Sex: Female
  Weight: 77 kg

DRUGS (10)
  1. UMECLIDINIUM [Concomitant]
     Active Substance: UMECLIDINIUM BROMIDE
     Indication: PRODUCT USED FOR UNKNOWN INDICATION
     Dosage: 2 PUFF(S), QD
  2. PREDNISOLONE. [Concomitant]
     Active Substance: PREDNISOLONE
     Indication: PRODUCT USED FOR UNKNOWN INDICATION
     Dosage: 5 MG
  3. MONTELUKAST [Concomitant]
     Active Substance: MONTELUKAST SODIUM
     Indication: PRODUCT USED FOR UNKNOWN INDICATION
     Dosage: 10 MG
  4. SYMBICORT [Concomitant]
     Active Substance: BUDESONIDE\FORMOTEROL FUMARATE DIHYDRATE
     Indication: PRODUCT USED FOR UNKNOWN INDICATION
     Dosage: 2 PUFF(S) (EVERY 48 HOURS )
  5. NUCALA [Suspect]
     Active Substance: MEPOLIZUMAB
     Dosage: 100 MG, Z (MONTHLY)
     Route: 042
     Dates: start: 20200919
  6. NUCALA [Suspect]
     Active Substance: MEPOLIZUMAB
     Indication: ASTHMA
     Dosage: 100 MG, Z (MONTHLY)
     Route: 058
     Dates: start: 20200618
  7. SALBUTAMOL [Suspect]
     Active Substance: ALBUTEROL
     Indication: PRODUCT USED FOR UNKNOWN INDICATION
     Dosage: 2 PUFF(S) EVERY 4 HOURS
  8. SALBUTAMOL [Suspect]
     Active Substance: ALBUTEROL
     Dosage: 2 PUFF(S), Z EVERY 2 HOUR
  9. IPRATROPIUM BROMIDE. [Concomitant]
     Active Substance: IPRATROPIUM BROMIDE
     Indication: PRODUCT USED FOR UNKNOWN INDICATION
     Dosage: 2 PUFF(S) (EVERY 4 HOURS)
  10. IPRATROPIUM BROMIDE. [Concomitant]
     Active Substance: IPRATROPIUM BROMIDE
     Dosage: 2 PUFF(S), Z EVERY 2 HOUR

REACTIONS (25)
  - Headache [Not Recovered/Not Resolved]
  - Asthma [Recovered/Resolved]
  - Therapeutic product effect incomplete [Unknown]
  - Product use in unapproved indication [Unknown]
  - Sputum purulent [Unknown]
  - Nausea [Not Recovered/Not Resolved]
  - Dysphonia [Unknown]
  - Influenza [Unknown]
  - Inappropriate schedule of product administration [Unknown]
  - Asthenia [Not Recovered/Not Resolved]
  - Chills [Unknown]
  - Odynophagia [Unknown]
  - Dry throat [Unknown]
  - Bone pain [Unknown]
  - Productive cough [Recovered/Resolved]
  - Cough [Recovered/Resolved]
  - Chest discomfort [Unknown]
  - Dyspnoea [Not Recovered/Not Resolved]
  - Nasal congestion [Recovered/Resolved]
  - Cough [Not Recovered/Not Resolved]
  - Wheezing [Recovering/Resolving]
  - Discomfort [Unknown]
  - Mobility decreased [Unknown]
  - Dizziness [Unknown]
  - Back pain [Unknown]

NARRATIVE: CASE EVENT DATE: 20201110
